FAERS Safety Report 13017194 (Version 13)
Quarter: 2018Q1

REPORT INFORMATION
  Report Type: Report from Study
  Country: BR (occurrence: BR)
  Receive Date: 20161212
  Receipt Date: 20180323
  Transmission Date: 20180508
  Serious: Yes (Life-Threatening, Hospitalization, Other)
  Sender: FDA-Public Use
  Company Number: PHHY2016BR169328

PATIENT
  Sex: Female
  Weight: 60 kg

DRUGS (3)
  1. SANDOSTATIN LAR DEPOT [Suspect]
     Active Substance: OCTREOTIDE ACETATE
     Indication: NEUROENDOCRINE TUMOUR OF THE LUNG
     Dosage: 30 MG, QMO
     Route: 030
     Dates: start: 20150101
  2. LEVOID [Concomitant]
     Active Substance: LEVOTHYROXINE
     Indication: THYROID MASS
     Dosage: 1 DF, QD
     Route: 048
  3. SIMVASTATIN. [Concomitant]
     Active Substance: SIMVASTATIN
     Indication: BLOOD CHOLESTEROL INCREASED
     Dosage: 1 DF, QD
     Route: 048

REACTIONS (34)
  - Erythema [Unknown]
  - Haemoptysis [Unknown]
  - Fatigue [Unknown]
  - Renal disorder [Unknown]
  - Renal failure [Recovering/Resolving]
  - Eating disorder [Unknown]
  - Pneumonia [Unknown]
  - Pancreatic neoplasm [Recovering/Resolving]
  - Memory impairment [Unknown]
  - Obesity [Unknown]
  - Cough [Not Recovered/Not Resolved]
  - Vomiting [Recovering/Resolving]
  - Feeding disorder [Unknown]
  - Nervousness [Unknown]
  - Dyspnoea [Unknown]
  - Oliguria [Unknown]
  - Hypersensitivity [Unknown]
  - Pulmonary oedema [Unknown]
  - Myalgia [Unknown]
  - Swelling [Unknown]
  - Pyrexia [Unknown]
  - Haemorrhage [Unknown]
  - Decreased immune responsiveness [Recovering/Resolving]
  - Dysphagia [Unknown]
  - Lung disorder [Unknown]
  - Headache [Unknown]
  - Weight increased [Unknown]
  - Malaise [Not Recovered/Not Resolved]
  - Vomiting [Recovered/Resolved]
  - Drug hypersensitivity [Recovering/Resolving]
  - Back pain [Unknown]
  - Gait inability [Unknown]
  - Weight decreased [Unknown]
  - Confusional state [Unknown]
